FAERS Safety Report 14243878 (Version 1)
Quarter: 2017Q4

REPORT INFORMATION
  Report Type: Report from Study
  Country: JP (occurrence: JP)
  Receive Date: 20171201
  Receipt Date: 20171201
  Transmission Date: 20180321
  Serious: Yes (Death, Life-Threatening, Hospitalization)
  Sender: FDA-Public Use
  Company Number: JP-ASTRAZENECA-2015SE80404

PATIENT
  Age: 68 Year
  Sex: Male
  Weight: 49.2 kg

DRUGS (6)
  1. SEIBULE [Concomitant]
     Active Substance: MIGLITOL
     Indication: DIABETES MELLITUS
     Route: 048
     Dates: end: 20150817
  2. ANYRUME [Concomitant]
     Active Substance: ACETAMINOPHEN
     Indication: TUMOUR PAIN
     Route: 048
     Dates: end: 20150817
  3. VITAMEDIN INTRAVENOUS [Concomitant]
     Active Substance: CYANOCOBALAMIN\PYRIDOXINE HYDROCHLORIDE\THIAMINE
     Indication: DEHYDRATION
     Dosage: 1V/DAY
     Route: 042
  4. MEDI4736 [Suspect]
     Active Substance: DURVALUMAB
     Indication: NEOPLASM
     Route: 042
     Dates: start: 20150810
  5. FEBURIC [Concomitant]
     Active Substance: FEBUXOSTAT
     Indication: HYPERURICAEMIA
     Route: 048
     Dates: end: 20150817
  6. GLACTIV [Concomitant]
     Active Substance: SITAGLIPTIN
     Indication: DIABETES MELLITUS
     Route: 048
     Dates: end: 20150817

REACTIONS (3)
  - Dehydration [Fatal]
  - Drug-induced liver injury [Fatal]
  - Hypoglycaemia [Unknown]

NARRATIVE: CASE EVENT DATE: 20150818
